FAERS Safety Report 17297716 (Version 1)
Quarter: 2020Q1

REPORT INFORMATION
  Report Type: Spontaneous
  Country: US (occurrence: US)
  Receive Date: 20200122
  Receipt Date: 20200122
  Transmission Date: 20200409
  Serious: No
  Sender: FDA-Public Use
  Company Number: US-AMGEN-USASP2020009292

PATIENT
  Sex: Female

DRUGS (3)
  1. IMITREX [Concomitant]
     Active Substance: SUMATRIPTAN SUCCINATE
  2. AIMOVIG [Suspect]
     Active Substance: ERENUMAB-AOOE
     Indication: PRODUCT USED FOR UNKNOWN INDICATION
     Dosage: 140 MILLIGRAM (MORE THAN ONCE A MONTH ONCE TRIED TO GET THREE TIMES A MONTH)
     Route: 065
  3. TOPIMAX [TOPIRAMATE] [Concomitant]
     Active Substance: TOPIRAMATE

REACTIONS (1)
  - Off label use [Unknown]
